FAERS Safety Report 12287352 (Version 1)
Quarter: 2016Q2

REPORT INFORMATION
  Report Type: Spontaneous
  Country: IT (occurrence: IT)
  Receive Date: 20160420
  Receipt Date: 20160420
  Transmission Date: 20160815
  Serious: Yes (Hospitalization)
  Sender: FDA-Public Use
  Company Number: IT-JNJFOC-20160413261

PATIENT
  Age: 31 Year
  Sex: Male

DRUGS (1)
  1. HALDOL [Suspect]
     Active Substance: HALOPERIDOL
     Indication: INSOMNIA
     Route: 048
     Dates: start: 20160409, end: 20160409

REACTIONS (7)
  - Tongue oedema [Recovering/Resolving]
  - Tremor [Recovering/Resolving]
  - Product use issue [Unknown]
  - Off label use [Unknown]
  - Extrapyramidal disorder [Recovering/Resolving]
  - Throat tightness [Recovering/Resolving]
  - Respiratory failure [Recovering/Resolving]

NARRATIVE: CASE EVENT DATE: 20160409
